FAERS Safety Report 9264100 (Version 2)
Quarter: 2013Q3

REPORT INFORMATION
  Report Type: Report from Study
  Country: JP (occurrence: JP)
  Receive Date: 20130430
  Receipt Date: 20130730
  Transmission Date: 20140515
  Serious: Yes (Hospitalization, Other)
  Sender: FDA-Public Use
  Company Number: JP-BRISTOL-MYERS SQUIBB COMPANY-16317331

PATIENT
  Age: 32 Year
  Sex: Male

DRUGS (10)
  1. SPRYCEL [Suspect]
     Indication: CHRONIC MYELOID LEUKAEMIA
     Dosage: 100MG/DAY: FROM 22-JUL-2011 TO 22-AUG-2011.?08APR13:TOOK 50MGX50TABS
     Route: 048
     Dates: start: 20091109
  2. FLUVOXAMINE MALEATE [Suspect]
     Dosage: TABS
     Dates: start: 20110105
  3. GASTER D [Concomitant]
     Indication: GASTRIC ULCER
     Dosage: TAB
     Route: 048
     Dates: start: 20100319
  4. LAXOBERON [Concomitant]
     Dosage: 1 DF = 10GTT/TIME,SOLN
     Route: 048
     Dates: start: 20101105
  5. LUVOX [Concomitant]
     Indication: OBSESSIVE-COMPULSIVE DISORDER
     Dosage: TAB
     Route: 048
     Dates: start: 20101207
  6. AMOXAN [Concomitant]
     Indication: OBSESSIVE-COMPULSIVE DISORDER
     Dosage: CAP
     Route: 048
     Dates: start: 20101207
  7. MYSLEE [Concomitant]
     Indication: INSOMNIA
     Dosage: TAB
     Route: 048
     Dates: start: 20101207
  8. HALCION [Concomitant]
     Indication: INSOMNIA
     Dosage: TAB
     Route: 048
     Dates: start: 20101207
  9. DESYREL TABS [Concomitant]
     Indication: OBSESSIVE-COMPULSIVE DISORDER
     Route: 048
     Dates: start: 20101207, end: 20110108
  10. CONSTAN [Concomitant]
     Indication: OBSESSIVE-COMPULSIVE DISORDER
     Dosage: TAB
     Route: 048
     Dates: start: 20101207

REACTIONS (2)
  - Toxicity to various agents [Recovered/Resolved]
  - Suicide attempt [Recovering/Resolving]
